FAERS Safety Report 8456363-3 (Version None)
Quarter: 2012Q2

REPORT INFORMATION
  Report Type: 
  Country: None (occurrence: None)
  Receive Date: 20120621
  Receipt Date: 20120615
  Transmission Date: 20120825
  Serious: Yes (Congenital Anomaly)
  Sender: FDA-Public Use
  Company Number: FR-GLAXOSMITHKLINE-B0808544A

PATIENT
  Sex: Male

DRUGS (4)
  1. FLUTICASONE PROPIONATE/SALMETEROL [Suspect]
     Indication: SICK RELATIVE
     Dosage: 1PUFF TWICE PER DAY
     Route: 064
  2. LEXOMIL [Suspect]
     Indication: DEPRESSION
     Dosage: 3MG PER DAY
     Route: 064
  3. NOCTAMIDE [Suspect]
     Indication: DEPRESSION
     Dosage: .5MG EVERY 3 DAYS
     Route: 064
  4. SPIRIVA [Suspect]
     Indication: SICK RELATIVE
     Dosage: 1PUFF PER DAY
     Route: 064

REACTIONS (2)
  - FOETAL EXPOSURE DURING PREGNANCY [None]
  - CONGENITAL CYSTIC LUNG [None]
